FAERS Safety Report 5001534-1 (Version None)
Quarter: 2006Q2

REPORT INFORMATION
  Report Type: 
  Country: None (occurrence: None)
  Receive Date: 20060501
  Receipt Date: 20060420
  Transmission Date: 20061013
  Serious: Yes (Hospitalization, Other)
  Sender: FDA-Public Use
  Company Number: 2004075607

PATIENT
  Age: 94 Year
  Sex: Female

DRUGS (12)
  1. ZOLOFT [Suspect]
     Indication: ILL-DEFINED DISORDER
     Dosage: 50 MG (50 MG, 1 IN 1 D), ORAL
     Route: 048
     Dates: start: 20030811, end: 20040901
  2. NEURONTIN [Suspect]
     Indication: NERVOUS SYSTEM DISORDER
     Dosage: 100 MG (100 MG, 1 IN 1 D), ORAL
     Route: 048
  3. DETROL [Suspect]
     Indication: ILL-DEFINED DISORDER
     Dosage: ORAL
     Route: 048
  4. ZYPREXA [Suspect]
     Indication: ILL-DEFINED DISORDER
     Dosage: ORAL
     Route: 048
     Dates: start: 20030630
  5. VIOXX [Suspect]
     Indication: ARTHRITIS
     Dates: start: 20040819
  6. MOTRIN [Suspect]
     Indication: ILL-DEFINED DISORDER
  7. TENORMIN [Concomitant]
  8. MULTIVITAMIN [Concomitant]
  9. SENOKOT [Concomitant]
  10. ARICEPT [Concomitant]
  11. ALL OTHER THERAPEUTIC PRODUCTS [Concomitant]
  12. HEMORID FOR WOMEN CREAM (ALOE VERA, PARAFFIN, LIQUID, PHENYLEPHRINE HY [Concomitant]

REACTIONS (10)
  - APHAGIA [None]
  - ASTHENIA [None]
  - BACK PAIN [None]
  - BLOOD PRESSURE INCREASED [None]
  - DYSPNOEA [None]
  - HEART RATE IRREGULAR [None]
  - INSOMNIA [None]
  - MOBILITY DECREASED [None]
  - OEDEMA PERIPHERAL [None]
  - WEIGHT DECREASED [None]
